FAERS Safety Report 24919620 (Version 4)
Quarter: 2025Q2

REPORT INFORMATION
  Report Type: Report from Study
  Country: US (occurrence: US)
  Receive Date: 20250204
  Receipt Date: 20250520
  Transmission Date: 20250717
  Serious: Yes (Other)
  Sender: ABBVIE
  Company Number: US-ABBVIE-6109940

PATIENT
  Age: 45 Year
  Sex: Male

DRUGS (1)
  1. SKYRIZI [Suspect]
     Active Substance: RISANKIZUMAB-RZAA
     Indication: Psoriasis
     Route: 058
     Dates: start: 2021

REACTIONS (4)
  - Renal cell carcinoma [Not Recovered/Not Resolved]
  - Rash [Recovered/Resolved]
  - Rash [Recovered/Resolved]
  - Immune system disorder [Unknown]

NARRATIVE: CASE EVENT DATE: 20250101
